FAERS Safety Report 6286181-6 (Version None)
Quarter: 2009Q3

REPORT INFORMATION
  Report Type: 
  Country: None (occurrence: None)
  Receive Date: 20090728
  Receipt Date: 20090720
  Transmission Date: 20100115
  Serious: Yes (Other)
  Sender: FDA-Public Use
  Company Number: FR-TEVA-202937ISR

PATIENT
  Sex: Female

DRUGS (1)
  1. AMOXICILLIN [Suspect]
     Route: 064

REACTIONS (7)
  - CNS VENTRICULITIS [None]
  - DRUG INEFFECTIVE [None]
  - HYDROCEPHALUS [None]
  - HYPERPROTEINAEMIA [None]
  - LISTERIOSIS [None]
  - MENINGITIS NEONATAL [None]
  - THROMBOPHLEBITIS [None]
